FAERS Safety Report 6915259-6 (Version None)
Quarter: 2010Q3

REPORT INFORMATION
  Report Type: 
  Country: None (occurrence: None)
  Receive Date: 20100809
  Receipt Date: 20100303
  Transmission Date: 20110219
  Serious: Yes (Hospitalization)
  Sender: FDA-Public Use
  Company Number: US-ABBOTT-08P-163-0448548-00

PATIENT
  Sex: Male
  Weight: 80.812 kg

DRUGS (2)
  1. DEPAKOTE ER [Suspect]
     Indication: EPILEPSY
     Dosage: 500 MG 2 TABS TWICE DAILY
     Route: 048
     Dates: start: 20040101
  2. LAMICTAL [Concomitant]
     Indication: CONVULSION
     Dates: start: 20080422

REACTIONS (3)
  - CONVULSION [None]
  - DRUG INEFFECTIVE [None]
  - TABLET ISSUE [None]
